FAERS Safety Report 10654743 (Version 1)
Quarter: 2014Q4

REPORT INFORMATION
  Report Type: Spontaneous
  Country: JP (occurrence: JP)
  Receive Date: 20141216
  Receipt Date: 20141216
  Transmission Date: 20150529
  Serious: Yes (Hospitalization)
  Sender: FDA-Public Use
  Company Number: JP-ASTRAZENECA-2014SE95163

PATIENT
  Age: 62 Year
  Sex: Female
  Weight: 72.1 kg

DRUGS (8)
  1. THYRADIN S [Concomitant]
     Active Substance: LEVOTHYROXINE SODIUM
     Indication: HYPOTHYROIDISM
     Route: 048
     Dates: start: 20141002
  2. SHAKUYAKU-KANZO-TO, TSUMURA [Concomitant]
     Indication: MUSCLE SPASMS
     Dates: start: 20141009
  3. CRAVIT [Concomitant]
     Active Substance: LEVOFLOXACIN
     Indication: BRONCHITIS
     Route: 048
     Dates: start: 20141009
  4. NEXIUM [Suspect]
     Active Substance: ESOMEPRAZOLE MAGNESIUM
     Indication: GASTROOESOPHAGEAL REFLUX DISEASE
     Route: 048
     Dates: start: 20141009, end: 20141016
  5. SUMIFERON [Concomitant]
     Active Substance: INTERFERON ALFA-N1
     Indication: RENAL CELL CARCINOMA
     Dosage: 3 MILLION UNITS/DAY, THREE TIMES PER WEEK
     Route: 058
     Dates: start: 20110221, end: 20140930
  6. MEDICON [Concomitant]
     Active Substance: DEXTROMETHORPHAN HYDROBROMIDE
     Indication: UPPER RESPIRATORY TRACT INFLAMMATION
     Route: 048
     Dates: start: 20141009
  7. SUTENT [Suspect]
     Active Substance: SUNITINIB MALATE
     Indication: RENAL CELL CARCINOMA
     Route: 048
     Dates: start: 20141002, end: 20141014
  8. MUCODYNE [Concomitant]
     Active Substance: CARBOCYSTEINE
     Indication: UPPER RESPIRATORY TRACT INFLAMMATION
     Route: 048
     Dates: start: 20141009

REACTIONS (10)
  - Hepatomegaly [Unknown]
  - Hepatic function abnormal [Unknown]
  - Pyrexia [Recovered/Resolved]
  - Cholelithiasis [Unknown]
  - Gastrointestinal oedema [Unknown]
  - Platelet count decreased [Recovered/Resolved]
  - Productive cough [Unknown]
  - Gallbladder enlargement [Unknown]
  - Muscle spasms [Unknown]
  - Abdominal discomfort [Unknown]

NARRATIVE: CASE EVENT DATE: 20141009
